FAERS Safety Report 5402675-7 (Version None)
Quarter: 2007Q3

REPORT INFORMATION
  Report Type: 
  Country: None (occurrence: None)
  Receive Date: 20070801
  Receipt Date: 20070725
  Transmission Date: 20080115
  Serious: Yes (Other)
  Sender: FDA-Public Use
  Company Number: A0667118A

PATIENT
  Sex: Female

DRUGS (1)
  1. ADVAIR DISKUS 100/50 [Suspect]
     Indication: ASTHMA
     Route: 065

REACTIONS (4)
  - FOOT FRACTURE [None]
  - FRACTURE [None]
  - JOINT SPRAIN [None]
  - RESORPTION BONE INCREASED [None]
